FAERS Safety Report 8357350-6 (Version None)
Quarter: 2012Q2

REPORT INFORMATION
  Report Type: 
  Country: None (occurrence: None)
  Receive Date: 20120514
  Receipt Date: 20120503
  Transmission Date: 20120825
  Serious: Yes (Other)
  Sender: FDA-Public Use
  Company Number: GB-JNJFOC-20120402083

PATIENT
  Age: 13 Year
  Sex: Female

DRUGS (4)
  1. CONCERTA [Suspect]
     Dosage: 36MG/PER DAY ON SCHOOL DAYS AND 27MG/PER DAY ON WEEKENDS
     Route: 048
     Dates: start: 20110301, end: 20120220
  2. ATOMOXETINE HCL [Suspect]
     Indication: PRODUCT USED FOR UNKNOWN INDICATION
     Route: 065
     Dates: start: 20110315, end: 20120220
  3. CONCERTA [Suspect]
     Indication: ATTENTION DEFICIT/HYPERACTIVITY DISORDER
     Route: 048
     Dates: start: 20091130, end: 20110301
  4. CONCERTA [Suspect]
     Route: 048
     Dates: start: 20120416

REACTIONS (1)
  - PERIPHERAL COLDNESS [None]
